FAERS Safety Report 6310870-8 (Version None)
Quarter: 2009Q3

REPORT INFORMATION
  Report Type: 
  Country: None (occurrence: None)
  Receive Date: 20090812
  Receipt Date: 20090729
  Transmission Date: 20100115
  Serious: Yes (Other)
  Sender: FDA-Public Use
  Company Number: 060001L09TUR

PATIENT
  Age: 29 Year
  Sex: Female

DRUGS (2)
  1. CLOMIPHENE CITRATE [Suspect]
     Indication: INFERTILITY FEMALE
     Dosage: 100 MG, 1 IN 1  DAYS ; 2 COURSE
     Dates: start: 20080301, end: 20080101
  2. CLOMIPHENE CITRATE [Suspect]
     Indication: INFERTILITY FEMALE
     Dosage: 100 MG, 1 IN 1  DAYS ; 2 COURSE
     Dates: start: 20081001

REACTIONS (2)
  - BLOOD CHOLESTEROL INCREASED [None]
  - HYPERTRIGLYCERIDAEMIA [None]
